FAERS Safety Report 4629834-5 (Version None)
Quarter: 2005Q2

REPORT INFORMATION
  Report Type: 
  Country: None (occurrence: None)
  Receive Date: 20050407
  Receipt Date: 20050401
  Transmission Date: 20051028
  Serious: No
  Sender: FDA-Public Use
  Company Number: 2005AP01982

PATIENT
  Age: 62 Year
  Sex: Male

DRUGS (4)
  1. TENORMIN [Suspect]
     Indication: HEART RATE INCREASED
     Dosage: 25 MG DAILY PO; A FEW YEARS
     Route: 048
  2. TENORMIN [Suspect]
     Indication: HYPERTENSION
     Dosage: 25 MG DAILY PO; A FEW YEARS
     Route: 048
  3. TENORMIN [Suspect]
     Indication: HEART RATE INCREASED
     Dosage: 25 MG BID PO
     Route: 048
  4. TENORMIN [Suspect]
     Indication: HYPERTENSION
     Dosage: 25 MG BID PO
     Route: 048

REACTIONS (2)
  - SKIN DEPIGMENTATION [None]
  - THERAPY NON-RESPONDER [None]
